FAERS Safety Report 14202097 (Version 2)
Quarter: 2017Q4

REPORT INFORMATION
  Report Type: Spontaneous
  Country: US (occurrence: US)
  Receive Date: 20171117
  Receipt Date: 20171121
  Transmission Date: 20180321
  Serious: No
  Sender: FDA-Public Use
  Company Number: US-BAYER-2017-222074

PATIENT
  Sex: Male
  Weight: 28.12 kg

DRUGS (1)
  1. MIRALAX [Suspect]
     Active Substance: POLYETHYLENE GLYCOL 3350
     Dosage: 0.5 DF, QD
     Dates: start: 2015

REACTIONS (3)
  - Tic [Recovered/Resolved]
  - Constipation [Not Recovered/Not Resolved]
  - Inappropriate prescribing [Unknown]
